FAERS Safety Report 8974290 (Version 1)
Quarter: 2012Q4

REPORT INFORMATION
  Report Type: Spontaneous
  Country: US (occurrence: None)
  Receive Date: 20121217
  Receipt Date: 20121217
  Transmission Date: 20130627
  Serious: Yes (Other)
  Sender: FDA-Public Use
  Company Number: None

PATIENT
  Age: 54 Year
  Sex: Female
  Weight: 82.56 kg

DRUGS (1)
  1. MIRTAZAPINE [Suspect]
     Indication: DEPRESSION
     Dosage: 15mg 1x bedtime po
     Route: 048
     Dates: start: 20120525, end: 20120729

REACTIONS (3)
  - Reaction to drug excipients [None]
  - Adverse drug reaction [None]
  - Product label issue [None]
